FAERS Safety Report 7758837 (Version 5)
Quarter: 2014Q1

REPORT INFORMATION
  Report Type: Spontaneous
  Country: US (occurrence: US)
  Receive Date: 20110113
  Receipt Date: 20140123
  Transmission Date: 20141002
  Serious: Yes (Hospitalization, Other)
  Sender: FDA-Public Use
  Company Number: US-BIOGENIDEC-2011BI001025

PATIENT
  Age: 55 Year
  Sex: Female

DRUGS (6)
  1. AVONEX [Suspect]
     Indication: MULTIPLE SCLEROSIS
     Route: 030
     Dates: start: 19961001, end: 200308
  2. AVONEX [Suspect]
     Indication: MULTIPLE SCLEROSIS
     Route: 030
     Dates: start: 200308, end: 20080311
  3. AVONEX [Suspect]
     Indication: MULTIPLE SCLEROSIS
     Route: 030
     Dates: start: 20090316, end: 201012
  4. AVONEX [Suspect]
     Indication: MULTIPLE SCLEROSIS
     Route: 030
     Dates: start: 2011
  5. AVONEX [Suspect]
     Indication: MULTIPLE SCLEROSIS
     Route: 030
  6. ISOSORBIDE [Concomitant]

REACTIONS (21)
  - Cerebrovascular accident [Recovered/Resolved]
  - Transient ischaemic attack [Recovered/Resolved]
  - Coma [Recovered/Resolved]
  - Hepatitis C [Unknown]
  - Myocardial infarction [Recovered/Resolved]
  - Renal failure [Not Recovered/Not Resolved]
  - Convulsion [Unknown]
  - Hypoglycaemia [Not Recovered/Not Resolved]
  - Diabetes mellitus [Recovered/Resolved]
  - Abasia [Recovered/Resolved]
  - Overweight [Recovered/Resolved]
  - Mass [Recovered/Resolved]
  - Cough [Recovered/Resolved]
  - Tonsillitis [Recovered/Resolved]
  - Ear infection [Recovered/Resolved]
  - Sinusitis [Recovered/Resolved]
  - Osteoporosis [Not Recovered/Not Resolved]
  - Intervertebral disc degeneration [Not Recovered/Not Resolved]
  - Diarrhoea [Not Recovered/Not Resolved]
  - Arthralgia [Recovered/Resolved]
  - Muscle spasms [Not Recovered/Not Resolved]
